FAERS Safety Report 14721409 (Version 1)
Quarter: 2018Q2

REPORT INFORMATION
  Report Type: Spontaneous
  Country: US (occurrence: US)
  Receive Date: 20180405
  Receipt Date: 20180405
  Transmission Date: 20180711
  Serious: Yes (Death)
  Sender: FDA-Public Use
  Company Number: US-BAYER-2018-064789

PATIENT
  Age: 98 Year
  Sex: Female

DRUGS (1)
  1. BAYER ASPIRIN [Suspect]
     Active Substance: ASPIRIN
     Indication: MALAISE
     Dosage: UNK UNK, QD
     Route: 065

REACTIONS (2)
  - Death [Fatal]
  - Product use in unapproved indication [None]
